FAERS Safety Report 23133145 (Version 1)
Quarter: 2023Q4

REPORT INFORMATION
  Report Type: Spontaneous
  Country: ES (occurrence: None)
  Receive Date: 20231101
  Receipt Date: 20231101
  Transmission Date: 20240109
  Serious: Yes (Hospitalization)
  Sender: FDA-Public Use
  Company Number: 2023A240887

PATIENT
  Age: 10 Month
  Sex: Female
  Weight: 8 kg

DRUGS (17)
  1. BEYFORTUS [Suspect]
     Active Substance: NIRSEVIMAB-ALIP
     Indication: High risk infant
     Dosage: 100.0MG ONCE/SINGLE ADMINISTRATION
     Dates: start: 20231004, end: 20231004
  2. MICONAZOLE NITRATE [Concomitant]
     Active Substance: MICONAZOLE NITRATE
     Dates: start: 20230531
  3. OMEPRAZOLE [Concomitant]
     Active Substance: OMEPRAZOLE
     Dates: start: 20230428
  4. FUROSEMIDA FRESENIUS KABI [Concomitant]
     Dates: start: 20230421
  5. ASPIRIN [Concomitant]
     Active Substance: ASPIRIN
     Dates: start: 20230503
  6. MEDEBIOTIN FUERTE SOLUCION INYECTABLE [Concomitant]
     Dates: start: 20230320
  7. LEVOTHYROXINE SODIUM [Concomitant]
     Active Substance: LEVOTHYROXINE SODIUM
     Dates: start: 20230906
  8. HIBOR [Concomitant]
     Dates: start: 20230412
  9. BRAUN CALCIUM CHLORIDE [Concomitant]
     Dates: start: 20230512
  10. GLUTAFERRO [Concomitant]
     Dates: start: 20230320
  11. ALFACALCIDOL [Concomitant]
     Active Substance: ALFACALCIDOL
     Dates: start: 20230412
  12. CIPROFLOXACIN [Concomitant]
     Active Substance: CIPROFLOXACIN
     Dates: start: 20230517
  13. ARANESP [Concomitant]
     Active Substance: DARBEPOETIN ALFA
     Indication: Nephrogenic anaemia
     Dates: start: 20230426
  14. CHOLECALCIFEROL [Concomitant]
     Active Substance: CHOLECALCIFEROL
     Dates: start: 20230320
  15. SEROALBUMINA AL [Concomitant]
     Indication: Congenital nephrotic syndrome
     Dates: start: 2022
  16. KERN PHARMA [Concomitant]
     Indication: Congenital nephrotic syndrome
     Dates: start: 20230320
  17. KERN PHARMA [Concomitant]
     Indication: Congenital nephrotic syndrome
     Dosage: 5% SERUM ALBUMIN
     Dates: start: 2022

REACTIONS (5)
  - Acute respiratory failure [Recovered/Resolved]
  - Respiratory tract infection [Recovered/Resolved]
  - Anaemia [Recovered/Resolved]
  - Moraxella infection [Recovered/Resolved]
  - Pyrexia [Recovered/Resolved]

NARRATIVE: CASE EVENT DATE: 20231005
